FAERS Safety Report 5880463-5 (Version None)
Quarter: 2008Q3

REPORT INFORMATION
  Report Type: 
  Country: None (occurrence: None)
  Receive Date: 20080912
  Receipt Date: 20080602
  Transmission Date: 20090109
  Serious: No
  Sender: FDA-Public Use
  Company Number: US-ABBOTT-08P-163-0451936-00

PATIENT
  Sex: Female
  Weight: 68.1 kg

DRUGS (3)
  1. HUMIRA [Suspect]
     Indication: COLITIS
     Route: 050
     Dates: start: 20080101
  2. COLOAZL [Concomitant]
     Indication: COLITIS
     Route: 048
     Dates: start: 20070101
  3. AZATHIOPRINE [Concomitant]
     Indication: COLITIS
     Route: 048
     Dates: start: 20070101

REACTIONS (1)
  - UNDERDOSE [None]
